FAERS Safety Report 6018023-8 (Version None)
Quarter: 2008Q4

REPORT INFORMATION
  Report Type: 
  Country: None (occurrence: None)
  Receive Date: 20081223
  Receipt Date: 20081219
  Transmission Date: 20090506
  Serious: Yes (Other)
  Sender: FDA-Public Use
  Company Number: B0551323A

PATIENT
  Age: 33 Year
  Sex: Female

DRUGS (1)
  1. MODACIN [Suspect]
     Indication: DRUG USE FOR UNKNOWN INDICATION
     Route: 042

REACTIONS (2)
  - HENOCH-SCHONLEIN PURPURA [None]
  - PULMONARY HAEMORRHAGE [None]
